FAERS Safety Report 5218958-X (Version None)
Quarter: 2007Q1

REPORT INFORMATION
  Report Type: 
  Country: None (occurrence: None)
  Receive Date: 20070123
  Receipt Date: 20070109
  Transmission Date: 20070707
  Serious: Yes (Other)
  Sender: FDA-Public Use
  Company Number: C-07-0001

PATIENT
  Age: 47 Year
  Sex: Female
  Weight: 58.9676 kg

DRUGS (7)
  1. MYTUSSIN AC COUGH SYRUP, SUGAR FREE (CODE 8045) [Suspect]
     Indication: BRONCHITIS
     Dosage: 1-2TSP/4 HRS. AS NEEDED ORALLY
     Route: 048
     Dates: start: 20070108
  2. MYTUSSIN AC COUGH SYRUP, SUGAR FREE (CODE 8045) [Suspect]
     Indication: COUGH
     Dosage: 1-2TSP/4 HRS. AS NEEDED ORALLY
     Route: 048
     Dates: start: 20070108
  3. LOTREL [Concomitant]
  4. ACIPHEX [Concomitant]
  5. DETROL [Concomitant]
  6. RANITIDINE [Concomitant]
  7. DIURETIC [Concomitant]

REACTIONS (7)
  - DRUG HYPERSENSITIVITY [None]
  - DYSPEPSIA [None]
  - ERUCTATION [None]
  - NAUSEA [None]
  - ORAL DISCOMFORT [None]
  - REACTION TO DRUG EXCIPIENTS [None]
  - THROAT IRRITATION [None]
